FAERS Safety Report 8148288-8 (Version None)
Quarter: 2012Q1

REPORT INFORMATION
  Report Type: 
  Country: None (occurrence: None)
  Receive Date: 20120218
  Receipt Date: 20110516
  Transmission Date: 20120608
  Serious: No
  Sender: FDA-Public Use
  Company Number: US-ALLERGAN-1106723US

PATIENT
  Sex: Female

DRUGS (2)
  1. JUVEDERM [Concomitant]
     Indication: SKIN WRINKLING
     Dosage: UNK
  2. BOTOX COSMETIC [Suspect]
     Indication: SKIN WRINKLING
     Dosage: 100 UNITS, SINGLE
     Route: 030

REACTIONS (2)
  - FACIAL PARESIS [None]
  - SENSORY LOSS [None]
